FAERS Safety Report 9873366 (Version 2)
Quarter: 2014Q1

REPORT INFORMATION
  Report Type: Spontaneous
  Country: AU (occurrence: AU)
  Receive Date: 20140206
  Receipt Date: 20140206
  Transmission Date: 20141002
  Serious: Yes (Other)
  Sender: FDA-Public Use
  Company Number: AU-009507513-1312AUS003533

PATIENT
  Age: 26 Year
  Sex: Female

DRUGS (1)
  1. IMPLANON NXT [Suspect]
     Dosage: UNK
     Route: 059
     Dates: start: 20110927, end: 201312

REACTIONS (3)
  - Device difficult to use [Recovered/Resolved]
  - Haemorrhage [Unknown]
  - Device deployment issue [Recovered/Resolved]
